FAERS Safety Report 4406667-6 (Version None)
Quarter: 2004Q3

REPORT INFORMATION
  Report Type: 
  Country: None (occurrence: None)
  Receive Date: 20040715
  Receipt Date: 20040705
  Transmission Date: 20050211
  Serious: Yes (Death, Hospitalization)
  Sender: FDA-Public Use
  Company Number: 2004210345FR

PATIENT
  Age: 73 Year
  Sex: Male

DRUGS (7)
  1. CAMPTOSAR [Suspect]
     Indication: SMALL CELL LUNG CANCER STAGE UNSPECIFIED
     Dosage: 65 MG/M2 (110 MG), CYCLIC, IV
     Route: 042
     Dates: start: 20040318, end: 20040318
  2. APROVIL (IRBESARTAN) [Concomitant]
  3. FLORAX (MACROGOL) [Concomitant]
  4. DURAGESIC [Concomitant]
  5. ONDANSETRON HYDROCHLORIDE [Concomitant]
  6. OFLOXACIN [Concomitant]
  7. CLINOMEL [Concomitant]

REACTIONS (12)
  - ANAEMIA [None]
  - CATHETER RELATED INFECTION [None]
  - COLONIC POLYP [None]
  - DEHYDRATION [None]
  - DIARRHOEA [None]
  - GENERAL PHYSICAL HEALTH DETERIORATION [None]
  - HAEMATOCHEZIA [None]
  - HYPONATRAEMIA [None]
  - PLATELET COUNT DECREASED [None]
  - SEPTIC SHOCK [None]
  - STAPHYLOCOCCAL INFECTION [None]
  - WHITE BLOOD CELL COUNT DECREASED [None]
